FAERS Safety Report 10258137 (Version 1)
Quarter: 2014Q2

REPORT INFORMATION
  Report Type: Spontaneous
  Country: FR (occurrence: FR)
  Receive Date: 20140625
  Receipt Date: 20140625
  Transmission Date: 20141212
  Serious: Yes (Other)
  Sender: FDA-Public Use
  Company Number: FR-TEVA-488943ISR

PATIENT
  Age: 48 Year
  Sex: Male

DRUGS (3)
  1. TRAMADOL TEVA [Suspect]
     Indication: POST-TRAUMATIC PAIN
     Dosage: ONE TO TWO TABLETS EVERY FOUR TO SIX HOURS
     Route: 048
     Dates: start: 20140513, end: 20140515
  2. DAFALGAN [Suspect]
     Indication: POST-TRAUMATIC PAIN
     Dosage: TWO CAPSULES THREE TO FOUR TIMES A DAY
     Route: 048
     Dates: start: 20140513
  3. FLAMMAZINE [Suspect]
     Indication: WOUND TREATMENT
     Route: 003
     Dates: start: 20140513

REACTIONS (2)
  - Convulsion [Recovered/Resolved]
  - Loss of consciousness [Recovered/Resolved]
